FAERS Safety Report 17977525 (Version 1)
Quarter: 2020Q3

REPORT INFORMATION
  Report Type: Spontaneous
  Country: FR (occurrence: FR)
  Receive Date: 20200703
  Receipt Date: 20200703
  Transmission Date: 20201103
  Serious: Yes (Other)
  Sender: FDA-Public Use
  Company Number: FR-ACCORD-187996

PATIENT
  Age: 63 Year
  Sex: Male

DRUGS (10)
  1. ETHAMBUTOL [Concomitant]
     Active Substance: ETHAMBUTOL HYDROCHLORIDE
     Indication: PULMONARY TUBERCULOSIS
     Dosage: 1200 MG/DAY
     Dates: start: 200912
  2. SORAFENIB/SORAFENIB TOSILATE [Suspect]
     Active Substance: SORAFENIB TOSYLATE
     Indication: HEPATIC CANCER METASTATIC
     Dosage: UNK UKN, UNK
     Route: 048
     Dates: start: 200902, end: 200911
  3. RIFABUTIN. [Interacting]
     Active Substance: RIFABUTIN
     Indication: PULMONARY TUBERCULOSIS
     Dosage: 450 MG, PER DAY
  4. OSELTAMIVIR/OSELTAMIVIR PHOSPHATE [Concomitant]
     Active Substance: OSELTAMIVIR PHOSPHATE
     Indication: INFLUENZA A VIRUS TEST POSITIVE
     Route: 065
     Dates: start: 200911
  5. MYCOPHENOLIC ACID. [Suspect]
     Active Substance: MYCOPHENOLIC ACID
     Indication: LIVER TRANSPLANT REJECTION
     Route: 065
  6. RIFAMPICIN [Interacting]
     Active Substance: RIFAMPIN
     Indication: PULMONARY TUBERCULOSIS
     Dosage: 600 MG PER DAY
  7. ISONIAZID/ISONIAZID CALCIUM PYRUVINATE/ISONIAZID SODIUM GLUCURONATE [Concomitant]
     Active Substance: ISONIAZID
     Indication: PULMONARY TUBERCULOSIS
     Dosage: 250 MG PER DAY
  8. MYCOPHENOLIC ACID. [Suspect]
     Active Substance: MYCOPHENOLIC ACID
     Indication: IMMUNOSUPPRESSANT DRUG THERAPY
     Route: 065
     Dates: start: 200810
  9. PYRAZINAMIDE. [Concomitant]
     Active Substance: PYRAZINAMIDE
     Indication: PULMONARY TUBERCULOSIS
     Dosage: 1500 MG PER DAY
     Route: 065
     Dates: start: 200912
  10. EVEROLIMUS. [Interacting]
     Active Substance: EVEROLIMUS
     Indication: IMMUNOSUPPRESSANT DRUG THERAPY
     Dosage: 5.25 MG, PER DAY
     Dates: start: 200810

REACTIONS (6)
  - Hepatic enzyme increased [Recovering/Resolving]
  - Pneumonia [Recovering/Resolving]
  - Pulmonary tuberculosis [Recovered/Resolved]
  - Influenza [Unknown]
  - Immunosuppressant drug level decreased [Recovering/Resolving]
  - Pancytopenia [Unknown]

NARRATIVE: CASE EVENT DATE: 200911
